FAERS Safety Report 10103097 (Version 2)
Quarter: 2014Q2

REPORT INFORMATION
  Report Type: Other
  Country: US (occurrence: US)
  Receive Date: 20140424
  Receipt Date: 20140627
  Transmission Date: 20141212
  Serious: Yes (Hospitalization, Other)
  Sender: FDA-Public Use
  Company Number: US-GSKPPD-2014GSK000049

PATIENT
  Age: 53 Year
  Sex: Male

DRUGS (3)
  1. AVANDIA [Suspect]
     Indication: DIABETES MELLITUS
     Route: 048
     Dates: start: 20020311, end: 20070104
  2. AVANDAMET [Suspect]
     Indication: DIABETES MELLITUS
     Dosage: 2MG/500MG
     Route: 048
     Dates: start: 20040522, end: 20040803
  3. AVANDARYL [Suspect]
     Indication: DIABETES MELLITUS
     Dosage: 4MG/2MG
     Route: 048
     Dates: start: 20070111, end: 20070321

REACTIONS (1)
  - Cerebrovascular accident [Recovered/Resolved]
